FAERS Safety Report 6863375-X (Version None)
Quarter: 2010Q3

REPORT INFORMATION
  Report Type: 
  Country: None (occurrence: None)
  Receive Date: 20100719
  Receipt Date: 20100713
  Transmission Date: 20110219
  Serious: Yes (Life-Threatening, Hospitalization)
  Sender: FDA-Public Use
  Company Number: 2010SP031964

PATIENT
  Age: 56 Year
  Sex: Female
  Weight: 79.4 kg

DRUGS (21)
  1. PEG-INTERFERON [Suspect]
     Indication: HEPATITIS C
     Dosage: 120 MCG; SC
     Route: 058
     Dates: start: 20100528
  2. RIBAVIRIN [Suspect]
     Indication: HEPATITIS C
     Dosage: 1000 MG;QD;PO
     Route: 048
     Dates: start: 20100528
  3. BOCEPREVIR [Suspect]
     Indication: HEPATITIS C
     Dosage: 2400 MG;QD;PO; 2400 MG;QD;PO
     Route: 048
     Dates: start: 20100625, end: 20100625
  4. BOCEPREVIR [Suspect]
     Indication: HEPATITIS C
     Dosage: 2400 MG;QD;PO; 2400 MG;QD;PO
     Route: 048
     Dates: start: 20100629
  5. SEROQUEL [Suspect]
     Indication: INSOMNIA
     Dosage: 300 MG;HS; PO
     Route: 048
     Dates: start: 20050101
  6. SUDAFED 12 HOUR [Suspect]
     Indication: SINUS CONGESTION
     Dosage: 2 DF;BID; PO
     Route: 048
     Dates: start: 20100201
  7. FEXOFENADINE [Suspect]
     Indication: SINUS CONGESTION
     Dosage: 1 DF;QD; PO
     Route: 048
     Dates: start: 20100201
  8. RANITIDINE (CON.) [Concomitant]
  9. METHYLIN (CON.) [Concomitant]
  10. CYMBALTA (CON.) [Concomitant]
  11. ZOLPIDEM (CON.) [Concomitant]
  12. SENOKOT (CON.) [Concomitant]
  13. MORPHINE SULFATE (CON.) [Concomitant]
  14. ATENOLOL (CON.) [Concomitant]
  15. FLONASE (CON.) [Concomitant]
  16. OXYCONTIN (CON.) [Concomitant]
  17. CLINDAMYCIN (CON.) [Concomitant]
  18. CORTISONE (CON.) [Concomitant]
  19. CARISOPRODOL (CON.) [Concomitant]
  20. DIAZEPAM (CON.) [Concomitant]
  21. IMITREX (CON.) [Concomitant]

REACTIONS (3)
  - DRUG ADMINISTRATION ERROR [None]
  - SYNCOPE [None]
  - TOXIC ENCEPHALOPATHY [None]
